FAERS Safety Report 7449854-5 (Version None)
Quarter: 2011Q2

REPORT INFORMATION
  Report Type: 
  Country: None (occurrence: None)
  Receive Date: 20110502
  Receipt Date: 20101228
  Transmission Date: 20111010
  Serious: Yes (Hospitalization, Other)
  Sender: FDA-Public Use
  Company Number: US-BAYER-201029597NA

PATIENT
  Age: 34 Year
  Sex: Female
  Weight: 170.7 kg

DRUGS (17)
  1. MULTI-VITAMIN [Concomitant]
     Dosage: UNK
     Dates: start: 20020101
  2. YASMIN [Suspect]
     Indication: MENSTRUAL CYCLE MANAGEMENT
  3. METHOCARBAMOL [Concomitant]
     Dosage: UNK
     Dates: start: 20020101
  4. POTASSIUM [Concomitant]
     Dosage: UNK
     Dates: end: 20030101
  5. HYDROCHLOROTHIAZIDE [Concomitant]
     Dosage: UNK
  6. LORTARB [Concomitant]
     Indication: PAIN
     Dosage: UNK
     Dates: start: 20020101
  7. ACE INHIBITOR NOS [Concomitant]
     Indication: HYPERTENSION
     Dosage: UNK
     Dates: start: 20040101
  8. NEXIUM [Concomitant]
     Dosage: UNK
     Dates: start: 20020101
  9. POTASSIUM [Concomitant]
     Dosage: 198 MG, QD
  10. YASMIN [Suspect]
     Indication: CONTRACEPTION
     Dosage: UNK UNK, UNK
     Route: 048
     Dates: start: 20030110, end: 20040101
  11. YASMIN [Suspect]
     Indication: PREMENSTRUAL SYNDROME
  12. FUROSEMIDE [Concomitant]
  13. HYDROCHLOROTHIAZIDE [Concomitant]
  14. LASIX [Concomitant]
     Indication: SWELLING
  15. VITAMIN C [Concomitant]
  16. MULTI-VITAMIN [Concomitant]
  17. ALBUTEROL [Concomitant]
     Dosage: UNK
     Dates: start: 20020101

REACTIONS (10)
  - ABDOMINAL PAIN [None]
  - FLANK PAIN [None]
  - ABDOMINAL PAIN UPPER [None]
  - GALLBLADDER PAIN [None]
  - FEELING HOT [None]
  - CHOLELITHIASIS [None]
  - PAIN [None]
  - CHOLECYSTITIS CHRONIC [None]
  - HEPATIC STEATOSIS [None]
  - NAUSEA [None]
